FAERS Safety Report 9059818 (Version 3)
Quarter: 2013Q1

REPORT INFORMATION
  Report Type: Spontaneous
  Country: US (occurrence: US)
  Receive Date: 20130212
  Receipt Date: 20130319
  Transmission Date: 20140127
  Serious: Yes (Other)
  Sender: FDA-Public Use
  Company Number: US-BAYER-2013-016794

PATIENT
  Age: 22 Year
  Sex: Female
  Weight: 52.15 kg

DRUGS (1)
  1. MIRENA [Suspect]
     Indication: CONTRACEPTION
     Dosage: 20 MCG/24HR, CONT
     Route: 015
     Dates: start: 20110118, end: 20130211

REACTIONS (5)
  - Uterine perforation [Recovered/Resolved]
  - Vaginal haemorrhage [Recovered/Resolved]
  - Complication of device removal [None]
  - Device breakage [None]
  - Syncope [Recovered/Resolved]
